FAERS Safety Report 5959137-8 (Version None)
Quarter: 2008Q4

REPORT INFORMATION
  Report Type: 
  Country: None (occurrence: None)
  Receive Date: 20081120
  Receipt Date: 20080220
  Transmission Date: 20090506
  Serious: No
  Sender: FDA-Public Use
  Company Number: A0710788A

PATIENT
  Age: 61 Year
  Sex: Male

DRUGS (17)
  1. BUPROPION HYDROCHLORIDE [Suspect]
     Indication: DEPRESSION
     Dosage: 100MG TWICE PER DAY
     Route: 048
     Dates: start: 20060101
  2. VIRACEPT [Concomitant]
  3. TRAVAD [Concomitant]
  4. LORAZEPAM [Concomitant]
  5. ZOLOFT [Concomitant]
  6. BUTALBITAL [Concomitant]
  7. ASPIRIN [Concomitant]
  8. CAFFEINE PILLS [Concomitant]
  9. MAXALT [Concomitant]
  10. MERONEM [Concomitant]
  11. NITROCINE [Concomitant]
  12. COMPAZINE [Concomitant]
  13. PROVASMIN [Concomitant]
  14. PROMETHAZINE [Concomitant]
  15. HYDROCODONE BITARTRATE [Concomitant]
  16. ALLEGRA-D [Concomitant]
  17. FLUTICASONE PROPIONATE [Concomitant]

REACTIONS (1)
  - DRUG INEFFECTIVE [None]
